FAERS Safety Report 7946997-4 (Version None)
Quarter: 2011Q4

REPORT INFORMATION
  Report Type: 
  Country: None (occurrence: None)
  Receive Date: 20111129
  Receipt Date: 20111128
  Transmission Date: 20120403
  Serious: Yes (Death, Other)
  Sender: FDA-Public Use
  Company Number: KR-BAYER-2011-028638

PATIENT
  Age: 76 Year
  Sex: Female
  Weight: 48.98 kg

DRUGS (3)
  1. GADOBUTROL [Suspect]
     Indication: MEMORY IMPAIRMENT
     Dosage: 7.5 ML, QD
     Route: 042
     Dates: start: 20110401, end: 20110401
  2. GADOBUTROL [Suspect]
     Indication: NUCLEAR MAGNETIC RESONANCE IMAGING BRAIN
  3. GADOBUTROL [Suspect]
     Indication: ARTERIOGRAM CAROTID

REACTIONS (14)
  - DYSPNOEA [None]
  - CYANOSIS [None]
  - HYPOTENSION [None]
  - ANAPHYLACTIC SHOCK [None]
  - RESPIRATORY DISTRESS [None]
  - DIZZINESS [None]
  - MUSCULAR WEAKNESS [None]
  - SOMNOLENCE [None]
  - BLOOD PRESSURE DECREASED [None]
  - CARDIAC ARREST [None]
  - COLD SWEAT [None]
  - PULSE ABSENT [None]
  - PLEURAL EFFUSION [None]
  - PULMONARY OEDEMA [None]
